FAERS Safety Report 22612230 (Version 1)
Quarter: 2023Q2

REPORT INFORMATION
  Report Type: Spontaneous
  Country: GB (occurrence: GB)
  Receive Date: 20230617
  Receipt Date: 20230617
  Transmission Date: 20230722
  Serious: Yes (Hospitalization)
  Sender: FDA-Public Use
  Company Number: GB-MHRA-MED-202306061647263340-MWHVF

PATIENT
  Age: 81 Year
  Sex: Male

DRUGS (1)
  1. PIRFENIDONE [Suspect]
     Active Substance: PIRFENIDONE
     Indication: Product used for unknown indication
     Dosage: 2403 MILLIGRAM DAILY; 267MG 9 PER DAY; THERAPY END DATE : NASK
     Route: 065
     Dates: start: 20230208

REACTIONS (1)
  - Cerebrovascular accident [Unknown]
